FAERS Safety Report 9614023 (Version 2)
Quarter: 2013Q4

REPORT INFORMATION
  Report Type: Report from Study
  Country: DE (occurrence: DE)
  Receive Date: 20131011
  Receipt Date: 20131011
  Transmission Date: 20140711
  Serious: Yes (Hospitalization)
  Sender: FDA-Public Use
  Company Number: DE-AMGEN-DEUCT2011059418

PATIENT
  Age: 39 Year
  Sex: Male
  Weight: 105 kg

DRUGS (13)
  1. ETANERCEPT [Suspect]
     Indication: RHEUMATOID ARTHRITIS
     Dosage: 50 MG, QWK
     Route: 058
     Dates: start: 20101119
  2. METHOTREXATE SODIUM [Concomitant]
     Indication: RHEUMATOID ARTHRITIS
     Dosage: 20 MG, WEEKLY
     Route: 058
     Dates: start: 2009
  3. METHOTREXATE SODIUM [Concomitant]
     Dosage: 15 MG, WEEKLY
     Route: 058
     Dates: start: 201101
  4. DECORTIN-H                         /00016201/ [Concomitant]
     Indication: RHEUMATOID ARTHRITIS
     Dosage: 15 MG, 1X/DAY
     Dates: start: 2009
  5. DECORTIN-H                         /00016201/ [Concomitant]
     Dosage: 5 MG, 1X/DAY
     Route: 048
     Dates: start: 201109
  6. DECORTIN-H                         /00016201/ [Concomitant]
     Dosage: 5 MG, 2X/DAY
  7. FOLIC ACID [Concomitant]
     Indication: PROPHYLAXIS
     Dosage: 5 MG, WEEKLY
     Route: 048
     Dates: start: 2009
  8. IDEOS [Concomitant]
     Dosage: UNK
  9. ACTONEL [Concomitant]
     Dosage: 35 MG, WEEKLY
  10. NEXIUM                             /01479302/ [Concomitant]
     Dosage: 20 MG, 1X/DAY
  11. DICLOFENAC [Concomitant]
     Dosage: 75 MG, AS NEEDED
  12. SIMVASTATIN [Concomitant]
     Dosage: 40 MG, 1X/DAY
  13. FENOFIBRATE [Concomitant]
     Dosage: 150 MG, 1X/DAY

REACTIONS (2)
  - Pyrexia [Recovered/Resolved]
  - Infection [Recovered/Resolved]
